FAERS Safety Report 22934765 (Version 2)
Quarter: 2024Q3

REPORT INFORMATION
  Report Type: Spontaneous
  Country: US (occurrence: None)
  Receive Date: 20230912
  Receipt Date: 20240906
  Transmission Date: 20241016
  Serious: No
  Sender: DOMPE FARMACEUTICI
  Company Number: US-FARMAPROD-202209-1785

PATIENT
  Sex: Female

DRUGS (9)
  1. OXERVATE [Suspect]
     Active Substance: CENEGERMIN-BKBJ
     Indication: Neurotrophic keratopathy
     Route: 047
     Dates: start: 20220607, end: 20220801
  2. OXERVATE [Suspect]
     Active Substance: CENEGERMIN-BKBJ
     Route: 047
     Dates: start: 20220915, end: 20221108
  3. OXERVATE [Suspect]
     Active Substance: CENEGERMIN-BKBJ
     Route: 047
     Dates: start: 20240208
  4. OXERVATE [Suspect]
     Active Substance: CENEGERMIN-BKBJ
  5. EYSUVIS [Concomitant]
     Active Substance: LOTEPREDNOL ETABONATE
  6. CEQUA [Concomitant]
     Active Substance: CYCLOSPORINE
  7. OPTIMEL MANUKA [Concomitant]
  8. AUTOLOGOUS HUMAN CORNEAL EPITHELIAL CELLS [Concomitant]
  9. PLATELET RICH PLASMA [Concomitant]
     Active Substance: PLATELET RICH PLASMA

REACTIONS (5)
  - Eye irritation [Unknown]
  - Eye pain [Unknown]
  - Sinus disorder [Unknown]
  - Product storage error [Recovered/Resolved]
  - Dry eye [Unknown]
